FAERS Safety Report 6585989-7 (Version None)
Quarter: 2010Q1

REPORT INFORMATION
  Report Type: 
  Country: None (occurrence: None)
  Receive Date: 20100216
  Receipt Date: 20100216
  Transmission Date: 20100710
  Serious: No
  Sender: FDA-Public Use
  Company Number: None

PATIENT
  Age: 72 Year
  Sex: Female
  Weight: 113.3993 kg

DRUGS (1)
  1. CEPHALEXIN [Suspect]
     Indication: CYSTITIS
     Dosage: 250 MG 4 TIMES/DAY MOUTH
     Route: 048
     Dates: start: 20100114, end: 20100115

REACTIONS (8)
  - CHILLS [None]
  - DYSPNOEA [None]
  - HEADACHE [None]
  - MYALGIA [None]
  - NAUSEA [None]
  - PRODUCT SUBSTITUTION ISSUE [None]
  - PRURITUS [None]
  - SINUS DISORDER [None]
